FAERS Safety Report 9183647 (Version 1)
Quarter: 2013Q1

REPORT INFORMATION
  Report Type: Spontaneous
  Country: US (occurrence: US)
  Receive Date: 20130322
  Receipt Date: 20130322
  Transmission Date: 20140127
  Serious: Yes (Other)
  Sender: FDA-Public Use
  Company Number: US-BRISTOL-MYERS SQUIBB COMPANY-16572570

PATIENT
  Age: 52 Year
  Sex: Male
  Weight: 80.27 kg

DRUGS (2)
  1. ERBITUX [Suspect]
     Indication: HEAD AND NECK CANCER
     Dosage: ALSO ON 30APR2012?RECEIVED 2 TREATMENTS?DOSE:500MG OR 1000MG
     Dates: start: 20120416
  2. CARBOPLATIN [Suspect]

REACTIONS (1)
  - Rash pustular [Recovering/Resolving]
